FAERS Safety Report 5311714-3 (Version None)
Quarter: 2007Q2

REPORT INFORMATION
  Report Type: 
  Country: None (occurrence: None)
  Receive Date: 20070426
  Receipt Date: 20070426
  Transmission Date: 20071010
  Serious: Yes (Hospitalization)
  Sender: FDA-Public Use
  Company Number: None

PATIENT
  Sex: Male
  Weight: 71.3281 kg

DRUGS (11)
  1. CETUXIMAB [Suspect]
     Indication: TONSIL CANCER
     Dosage: 250 MG/M2 IV WEEKLY
     Route: 042
     Dates: start: 20070327, end: 20070417
  2. CISPLATIN [Suspect]
     Indication: TONSIL CANCER
     Dosage: 30 MG/M2 IV WEEKLY
     Route: 042
     Dates: start: 20070327, end: 20070417
  3. RXT [Concomitant]
  4. DURAGESIC-100 [Concomitant]
  5. SALAGEN [Concomitant]
  6. ALPRAZOLAM [Concomitant]
  7. MAGNESIUM OXIDE [Concomitant]
  8. LISINOPRIL AND HYDROCHLOROTHIAZIDE [Concomitant]
  9. CENTRUM [Concomitant]
  10. CALCIUM CHLORIDE [Concomitant]
  11. FISH/FLAX/BORAG [Concomitant]

REACTIONS (9)
  - ANOREXIA [None]
  - DRY MOUTH [None]
  - HAEMOGLOBIN DECREASED [None]
  - MUCOSAL INFLAMMATION [None]
  - NEUTROPHIL COUNT DECREASED [None]
  - PLATELET COUNT DECREASED [None]
  - POST PROCEDURAL HAEMORRHAGE [None]
  - PROCEDURAL HYPOTENSION [None]
  - WHITE BLOOD CELL COUNT INCREASED [None]
